FAERS Safety Report 9146239 (Version 1)
Quarter: 2013Q1

REPORT INFORMATION
  Report Type: Spontaneous
  Country: US (occurrence: US)
  Receive Date: 20130307
  Receipt Date: 20130307
  Transmission Date: 20140127
  Serious: Yes (Other)
  Sender: FDA-Public Use
  Company Number: US-PFIZER INC-2013073523

PATIENT
  Age: 8 Year
  Sex: Male
  Weight: 36.3 kg

DRUGS (3)
  1. CHILDREN^S MOTRIN [Suspect]
     Indication: PYREXIA
     Dosage: 2.5 TSP
     Route: 048
     Dates: start: 20130220, end: 20130221
  2. CHILDREN^S MOTRIN [Suspect]
     Indication: HEADACHE
  3. SINGULAIR [Concomitant]
     Dosage: UNK
     Route: 065

REACTIONS (2)
  - Hallucination [Not Recovered/Not Resolved]
  - Abnormal behaviour [Not Recovered/Not Resolved]
